FAERS Safety Report 6416194-2 (Version None)
Quarter: 2009Q4

REPORT INFORMATION
  Report Type: 
  Country: None (occurrence: None)
  Receive Date: 20091023
  Receipt Date: 20091019
  Transmission Date: 20100525
  Serious: Yes (Hospitalization)
  Sender: FDA-Public Use
  Company Number: 1000009553

PATIENT
  Age: 64 Year
  Sex: Female

DRUGS (6)
  1. BYSTOLIC [Suspect]
     Indication: HYPERTENSION
     Dosage: 5 MG (5 MG, 1 IN 1 D), ORAL
     Route: 048
     Dates: start: 20091002, end: 20091014
  2. CHOLESTIPOL [Concomitant]
  3. TRIAZOLAM [Concomitant]
  4. GRAPE SEED EXTRACT [Concomitant]
  5. CO-ENZYME Q10 (50 MILLIGRAM, TABLETS) [Concomitant]
  6. VITAMIN D [Concomitant]

REACTIONS (1)
  - DEVICE OCCLUSION [None]
